FAERS Safety Report 15848245 (Version 1)
Quarter: 2019Q1

REPORT INFORMATION
  Report Type: Spontaneous
  Country: US (occurrence: US)
  Receive Date: 20190121
  Receipt Date: 20190121
  Transmission Date: 20190417
  Serious: No
  Sender: FDA-Public Use
  Company Number: US-PFIZER INC-2019016491

PATIENT
  Age: 75 Year
  Sex: Female

DRUGS (9)
  1. PRAVACHOL [Suspect]
     Active Substance: PRAVASTATIN SODIUM
     Dosage: UNK
  2. ZELNORM [Suspect]
     Active Substance: TEGASEROD MALEATE
     Dosage: UNK
  3. ZOFRAN [Suspect]
     Active Substance: ONDANSETRON HYDROCHLORIDE
     Dosage: UNK
  4. LEVAQUIN [Suspect]
     Active Substance: LEVOFLOXACIN
     Dosage: UNK
  5. ZOCOR [Suspect]
     Active Substance: SIMVASTATIN
     Dosage: UNK
  6. MORPHINE SULFATE. [Suspect]
     Active Substance: MORPHINE SULFATE
     Dosage: UNK
  7. ROCEPHIN [Suspect]
     Active Substance: CEFTRIAXONE SODIUM
     Dosage: UNK
  8. PHENERGAN [Suspect]
     Active Substance: PROMETHAZINE HYDROCHLORIDE
     Dosage: UNK
  9. HYDROCODONE [Suspect]
     Active Substance: HYDROCODONE
     Dosage: UNK

REACTIONS (1)
  - Drug hypersensitivity [Unknown]
